FAERS Safety Report 9381557 (Version 3)
Quarter: 2013Q3

REPORT INFORMATION
  Report Type: Report from Study
  Country: US (occurrence: US)
  Receive Date: 20130703
  Receipt Date: 20130830
  Transmission Date: 20140515
  Serious: Yes (Hospitalization)
  Sender: FDA-Public Use
  Company Number: US-SANOFI-AVENTIS-2013SA066455

PATIENT
  Sex: Female

DRUGS (1)
  1. AUBAGIO [Suspect]
     Dosage: THERAPY START DATE: 4 MONTHS AGO
     Route: 048

REACTIONS (1)
  - Bone sarcoma [Recovered/Resolved]
